FAERS Safety Report 5366164-0 (Version None)
Quarter: 2007Q2

REPORT INFORMATION
  Report Type: 
  Country: None (occurrence: None)
  Receive Date: 20070611
  Receipt Date: 20060727
  Transmission Date: 20071010
  Serious: Yes (Death)
  Sender: FDA-Public Use
  Company Number: USA-2006-0026832

PATIENT
  Age: 22 Year
  Sex: Male
  Weight: 85.3 kg

DRUGS (7)
  1. OXYCONTIN [Suspect]
     Indication: DRUG ABUSER
  2. COCAINE (COCAINE) [Suspect]
     Indication: DRUG ABUSER
  3. EPHEDRINE SUL CAP [Suspect]
     Indication: DRUG USE FOR UNKNOWN INDICATION
  4. ACETYLSALICYLIC ACID SRT [Suspect]
     Indication: DRUG USE FOR UNKNOWN INDICATION
  5. DEXTROMETHORPHAN HYDROBROMIDE [Suspect]
     Indication: DRUG ABUSER
  6. ACETAMINOPHEN [Suspect]
     Indication: DRUG ABUSER
  7. CAFFEINE CITRATE [Suspect]
     Indication: DRUG ABUSER

REACTIONS (1)
  - MULTIPLE DRUG OVERDOSE ACCIDENTAL [None]
